FAERS Safety Report 21419510 (Version 2)
Quarter: 2022Q4

REPORT INFORMATION
  Report Type: Spontaneous
  Country: US (occurrence: US)
  Receive Date: 20221006
  Receipt Date: 20221102
  Transmission Date: 20230112
  Serious: Yes (Other)
  Sender: FDA-Public Use
  Company Number: US-JAZZ-2022-US-030300

PATIENT
  Age: 24 Year
  Sex: Female
  Weight: 59 kg

DRUGS (1)
  1. XYREM [Suspect]
     Active Substance: SODIUM OXYBATE
     Indication: Narcolepsy
     Dosage: 4.5 GRAM

REACTIONS (4)
  - Depressed level of consciousness [Recovered/Resolved]
  - Hypertension [Recovered/Resolved]
  - Intentional product misuse [Unknown]
  - Nystagmus [Recovered/Resolved]

NARRATIVE: CASE EVENT DATE: 20220820
